FAERS Safety Report 6148606-6 (Version None)
Quarter: 2009Q2

REPORT INFORMATION
  Report Type: 
  Country: None (occurrence: None)
  Receive Date: 20090406
  Receipt Date: 20090406
  Transmission Date: 20091009
  Serious: No
  Sender: FDA-Public Use
  Company Number: None

PATIENT
  Age: 67 Year
  Sex: Female
  Weight: 67.1324 kg

DRUGS (1)
  1. SIMVASTATIN [Suspect]
     Indication: BLOOD CHOLESTEROL INCREASED
     Dosage: 20 MG 1 TABLET AT BEDTIM
     Dates: start: 20081205, end: 20090326

REACTIONS (4)
  - CARDIAC FLUTTER [None]
  - FATIGUE [None]
  - MENTAL DISORDER [None]
  - SLUGGISHNESS [None]
